FAERS Safety Report 22042759 (Version 1)
Quarter: 2023Q1

REPORT INFORMATION
  Report Type: Spontaneous
  Country: FR (occurrence: FR)
  Receive Date: 20230228
  Receipt Date: 20230228
  Transmission Date: 20230417
  Serious: Yes (Hospitalization)
  Sender: FDA-Public Use
  Company Number: None

PATIENT
  Age: 93 Year
  Sex: Female

DRUGS (6)
  1. LEVETIRACETAM [Suspect]
     Active Substance: LEVETIRACETAM
     Indication: Seizure prophylaxis
     Dosage: 1 GRAM, ONCE DAILY (QD)
     Route: 048
     Dates: start: 20120209
  2. FLUINDIONE [Suspect]
     Active Substance: FLUINDIONE
     Indication: Thrombosis prophylaxis
     Dosage: 40 MILLIGRAM, ONCE DAILY (QD)
     Route: 048
     Dates: start: 20150205
  3. PREGABALIN [Suspect]
     Active Substance: PREGABALIN
     Indication: Pain
     Route: 048
     Dates: start: 20151105
  4. TERBINAFINE [Suspect]
     Active Substance: TERBINAFINE
     Indication: Fungal infection
     Dosage: 250 MILLIGRAM, ONCE DAILY (QD)
     Route: 048
  5. LETROZOLE [Suspect]
     Active Substance: LETROZOLE
     Indication: Breast cancer
     Dosage: 2.5 MILLIGRAM, ONCE DAILY (QD)
     Route: 048
     Dates: start: 20220301
  6. ESOMEPRAZOLE [Suspect]
     Active Substance: ESOMEPRAZOLE
     Indication: Prophylaxis
     Route: 048
     Dates: start: 20151105

REACTIONS (1)
  - Ischaemic stroke [Recovering/Resolving]

NARRATIVE: CASE EVENT DATE: 20230129
